FAERS Safety Report 8606439-2 (Version None)
Quarter: 2012Q3

REPORT INFORMATION
  Report Type: 
  Country: None (occurrence: None)
  Receive Date: 20120820
  Receipt Date: 20120813
  Transmission Date: 20120928
  Serious: Yes (Hospitalization)
  Sender: FDA-Public Use
  Company Number: NL-PFIZER INC-2012199833

PATIENT
  Sex: Female
  Weight: 57 kg

DRUGS (10)
  1. GENOTROPIN [Suspect]
     Dosage: 0.3 MG, 7/WK
     Route: 058
     Dates: start: 20030519
  2. PARLODEL [Concomitant]
     Indication: GALACTOSAEMIA
     Dosage: UNK
     Dates: start: 19960612
  3. PREDNISOLONE [Concomitant]
     Indication: BLOOD CORTICOTROPHIN DECREASED
     Dosage: UNK
     Dates: start: 19961201
  4. SINASPRIL [Concomitant]
     Indication: EMBOLISM ARTERIAL
     Dosage: UNK
  5. CALCIUM-SANDOZ [Concomitant]
     Indication: OSTEOPOROSIS
     Dosage: UNK
  6. SINASPRIL [Concomitant]
     Indication: THROMBOSIS
  7. LASILETTEN [Concomitant]
     Indication: SWEAT GLAND DISORDER
     Dosage: UNK
  8. LEVOTHYROXINE [Concomitant]
     Indication: BLOOD THYROID STIMULATING HORMONE DECREASED
     Dosage: UNK
     Dates: start: 19861201
  9. LEVOTHYROXINE [Concomitant]
     Indication: PRIMARY HYPOTHYROIDISM
  10. LORAZEPAM [Concomitant]
     Indication: SLEEP DISORDER
     Dosage: UNK
     Dates: start: 19950601

REACTIONS (1)
  - SEPSIS [None]
